FAERS Safety Report 13273854 (Version 6)
Quarter: 2017Q2

REPORT INFORMATION
  Report Type: Spontaneous
  Country: IT (occurrence: IT)
  Receive Date: 20170227
  Receipt Date: 20170525
  Transmission Date: 20170830
  Serious: Yes (Other)
  Sender: FDA-Public Use
  Company Number: IT-SA-2017SA030417

PATIENT
  Age: 39 Year
  Sex: Female

DRUGS (4)
  1. TORA-DOL [Concomitant]
     Active Substance: KETOROLAC TROMETHAMINE
     Indication: ARTHRALGIA
  2. ZOMIG [Concomitant]
     Active Substance: ZOLMITRIPTAN
     Indication: HEADACHE
  3. TORA-DOL [Concomitant]
     Active Substance: KETOROLAC TROMETHAMINE
     Indication: ARTHRALGIA
  4. AUBAGIO [Suspect]
     Active Substance: TERIFLUNOMIDE
     Indication: MULTIPLE SCLEROSIS
     Route: 048
     Dates: start: 20161011, end: 20170217

REACTIONS (6)
  - Alveolar bone resorption [Unknown]
  - Bone lesion [Unknown]
  - Pain in jaw [Recovered/Resolved with Sequelae]
  - Bone density decreased [Unknown]
  - Tooth loss [Recovered/Resolved with Sequelae]
  - Dental caries [Unknown]

NARRATIVE: CASE EVENT DATE: 20170211
